FAERS Safety Report 8809522 (Version 1)
Quarter: 2012Q4

REPORT INFORMATION
  Report Type: 
  Country: US (occurrence: US)
  Receive Date: 20120926
  Receipt Date: 20120926
  Transmission Date: 20130627
  Serious: No
  Sender: FDA-Public Use
  Company Number: US-ASTRAZENECA-2012SE72608

PATIENT
  Age: 19511 Day
  Sex: Female

DRUGS (19)
  1. NEXIUM [Suspect]
     Route: 048
  2. NEXIUM [Suspect]
     Route: 048
     Dates: start: 20120411
  3. CYMBALTA [Concomitant]
  4. ANTIDEPRESSANTS [Concomitant]
  5. OLANZAPINE [Concomitant]
  6. FOLIC ACID [Concomitant]
  7. ABATACEPT (ORENCIA) [Concomitant]
  8. TAZTIA [Concomitant]
  9. METHOTREXATE [Concomitant]
  10. FLUCONAZOLE [Concomitant]
  11. VENLAFAXINE [Concomitant]
  12. QUINAPRIL [Concomitant]
  13. HYDROCHLOROTHIAZIDE [Concomitant]
  14. LEUCOVORIN [Concomitant]
  15. RANITIDINE [Concomitant]
  16. PROZAC [Concomitant]
  17. SOLR [Concomitant]
  18. 24 HR [Concomitant]
  19. TABS [Concomitant]

REACTIONS (15)
  - Dyspepsia [Unknown]
  - Drug effect decreased [Unknown]
  - Burning sensation [Unknown]
  - Crying [Unknown]
  - Rheumatoid arthritis [Unknown]
  - Gastrooesophageal reflux disease [Unknown]
  - Leukocytosis [Unknown]
  - Rosacea [Unknown]
  - Hypertension [Unknown]
  - Anxiety [Unknown]
  - Neck pain [Unknown]
  - Pain [Unknown]
  - Paraesthesia [Unknown]
  - Depression [Unknown]
  - Off label use [Unknown]
